FAERS Safety Report 7002116-2 (Version None)
Quarter: 2010Q3

REPORT INFORMATION
  Report Type: 
  Country: None (occurrence: None)
  Receive Date: 20100920
  Receipt Date: 20070821
  Transmission Date: 20110219
  Serious: Yes (Other)
  Sender: FDA-Public Use
  Company Number: US-ASTRAZENECA-2006UW23261

PATIENT
  Age: 685 Month
  Sex: Male

DRUGS (8)
  1. SEROQUEL [Suspect]
     Indication: SLEEP DISORDER
     Dosage: 100 MG ONE HALF TABLET AT BEDTIME, 25 MG TWO TABLETS AT BEDTIME
     Route: 048
     Dates: start: 20040201
  2. SEROQUEL [Suspect]
     Indication: MIGRAINE
     Dosage: 100 MG ONE HALF TABLET AT BEDTIME, 25 MG TWO TABLETS AT BEDTIME
     Route: 048
     Dates: start: 20040201
  3. SEROQUEL [Suspect]
     Indication: HALLUCINATION, AUDITORY
     Dosage: 100 MG ONE HALF TABLET AT BEDTIME, 25 MG TWO TABLETS AT BEDTIME
     Route: 048
     Dates: start: 20040201
  4. SEROQUEL [Suspect]
     Indication: HALLUCINATION, VISUAL
     Dosage: 100 MG ONE HALF TABLET AT BEDTIME, 25 MG TWO TABLETS AT BEDTIME
     Route: 048
     Dates: start: 20040201
  5. METFORMIN HCL [Concomitant]
     Indication: DIABETES MELLITUS
     Dosage: 500 MG - 1500 MG
     Route: 048
     Dates: start: 20050301
  6. WELLBUTRIN XL [Concomitant]
     Dosage: 150 MG - 300 MG
     Route: 048
     Dates: start: 20040101
  7. ZANTAC [Concomitant]
     Dates: start: 20040101
  8. PREDNISONE HCL [Concomitant]
     Dosage: 20 MG TWO TABLETS ONCE EVERYDAY
     Route: 048
     Dates: start: 20041001

REACTIONS (4)
  - DIABETES MELLITUS INADEQUATE CONTROL [None]
  - DIABETIC KETOACIDOSIS [None]
  - HYPERGLYCAEMIA [None]
  - TYPE 2 DIABETES MELLITUS [None]
